FAERS Safety Report 19181276 (Version 2)
Quarter: 2021Q2

REPORT INFORMATION
  Report Type: Spontaneous
  Country: US (occurrence: US)
  Receive Date: 20210426
  Receipt Date: 20210507
  Transmission Date: 20210717
  Serious: Yes (Other)
  Sender: FDA-Public Use
  Company Number: US-AMGEN-USASP2021059252

PATIENT
  Age: 71 Year
  Sex: Female

DRUGS (8)
  1. PREDNISONE. [Concomitant]
     Active Substance: PREDNISONE
     Indication: ARTHRITIS
     Dosage: 10 MILLIGRAM, QD
  2. VOLTARENE (DICLOFENAC SODIUM) [Concomitant]
     Active Substance: DICLOFENAC SODIUM
     Dosage: APPLY UP TO 4 TIMES DAILY  OVER AFFECTED AREAS (2 GM ON SMALL JOINTS AND 4GM ON LARGE JOINTS)
     Route: 062
  3. PREDNISONE. [Concomitant]
     Active Substance: PREDNISONE
     Dosage: 5 MILLIGRAM, BID
     Route: 048
  4. FUROSEMIDE. [Concomitant]
     Active Substance: FUROSEMIDE
     Dosage: 20 MILLIGRAM
     Route: 048
  5. CALCIUM [Concomitant]
     Active Substance: CALCIUM
     Dosage: 1200 MILLIGRAM
  6. COVID?19 VACCINE NOS. [Concomitant]
     Active Substance: COVID-19 VACCINE NOS
  7. PROLIA [Suspect]
     Active Substance: DENOSUMAB
     Indication: OSTEOPOROSIS POSTMENOPAUSAL
     Dosage: UNK
     Route: 065
     Dates: start: 20200623
  8. VITAMIN D [COLECALCIFEROL] [Concomitant]
     Active Substance: CHOLECALCIFEROL
     Dosage: 1000 IU INTERNATIONAL UNIT(S), QD

REACTIONS (19)
  - Jaw clicking [Unknown]
  - Cystitis [Unknown]
  - Vision blurred [Recovering/Resolving]
  - Myalgia [Unknown]
  - Endocarditis [Unknown]
  - Furuncle [Unknown]
  - Insomnia [Unknown]
  - Ear haemorrhage [Recovered/Resolved]
  - Oral infection [Unknown]
  - Rheumatoid arthritis [Unknown]
  - Haemorrhoids [Unknown]
  - Urticaria [Recovered/Resolved]
  - Pain in jaw [Not Recovered/Not Resolved]
  - Bone pain [Recovering/Resolving]
  - Illness [Unknown]
  - Fungal infection [Unknown]
  - Gingival bleeding [Unknown]
  - Rash [Unknown]
  - Trismus [Unknown]

NARRATIVE: CASE EVENT DATE: 2020
